FAERS Safety Report 13585396 (Version 16)
Quarter: 2021Q1

REPORT INFORMATION
  Report Type: Spontaneous
  Country: US (occurrence: US)
  Receive Date: 20170526
  Receipt Date: 20210329
  Transmission Date: 20210419
  Serious: Yes (Hospitalization, Other)
  Sender: FDA-Public Use
  Company Number: US-INCYTE CORPORATION-2017IN003893

PATIENT

DRUGS (26)
  1. HYDROXYUREA. [Suspect]
     Active Substance: HYDROXYUREA
     Dosage: 500 MILLIGRAM, DAILY
     Route: 065
  2. ASPIRIN                            /00002701/ [Concomitant]
     Active Substance: ASPIRIN
     Indication: PRODUCT USED FOR UNKNOWN INDICATION
     Dosage: UNK
     Route: 065
  3. ATORVASTATIN [Concomitant]
     Active Substance: ATORVASTATIN
     Indication: PRODUCT USED FOR UNKNOWN INDICATION
     Dosage: UNK
     Route: 065
  4. JAKAFI [Interacting]
     Active Substance: RUXOLITINIB
     Dosage: 15 MG, BID
     Route: 048
  5. VIAGRA [Concomitant]
     Active Substance: SILDENAFIL CITRATE
     Indication: LIBIDO DISORDER
     Dosage: UNK
     Route: 065
     Dates: start: 2016
  6. JAKAFI [Interacting]
     Active Substance: RUXOLITINIB
     Dosage: 15 MG, BID
     Route: 048
  7. JAKAFI [Interacting]
     Active Substance: RUXOLITINIB
     Dosage: 15 MILLIGRAM
     Route: 048
     Dates: start: 2016
  8. JAKAFI [Interacting]
     Active Substance: RUXOLITINIB
     Dosage: UNK
     Route: 048
  9. PAXIL [Interacting]
     Active Substance: PAROXETINE HYDROCHLORIDE
     Indication: PRODUCT USED FOR UNKNOWN INDICATION
     Dosage: UNK
     Route: 065
     Dates: start: 202101
  10. NITROGLYCERIN. [Concomitant]
     Active Substance: NITROGLYCERIN
     Indication: PRODUCT USED FOR UNKNOWN INDICATION
     Dosage: UNK
     Route: 065
  11. TAMSULOSIN [Concomitant]
     Active Substance: TAMSULOSIN
     Indication: PRODUCT USED FOR UNKNOWN INDICATION
     Dosage: UNK
     Route: 065
  12. JAKAFI [Interacting]
     Active Substance: RUXOLITINIB
     Dosage: 15 MG, BID
     Route: 048
  13. AMLODIPINE [Concomitant]
     Active Substance: AMLODIPINE BESYLATE
     Indication: PRODUCT USED FOR UNKNOWN INDICATION
     Dosage: 2.5 MG, QD
     Route: 048
  14. BABY ASPIRIN [Concomitant]
     Active Substance: ASPIRIN
     Indication: PRODUCT USED FOR UNKNOWN INDICATION
     Dosage: UNK
     Route: 065
  15. SERTRALINE [Concomitant]
     Active Substance: SERTRALINE HYDROCHLORIDE
     Indication: PRODUCT USED FOR UNKNOWN INDICATION
     Route: 065
  16. JAKAFI [Suspect]
     Active Substance: RUXOLITINIB
     Indication: POLYCYTHAEMIA VERA
     Dosage: 15 MG, BID
     Route: 048
     Dates: start: 20170508
  17. JAKAFI [Interacting]
     Active Substance: RUXOLITINIB
     Dosage: 15 MG, BID
     Route: 048
  18. HYDROCODONE [Concomitant]
     Active Substance: HYDROCODONE
     Indication: PRODUCT USED FOR UNKNOWN INDICATION
     Route: 065
  19. ZOLPIDEM [Concomitant]
     Active Substance: ZOLPIDEM TARTRATE
     Indication: PRODUCT USED FOR UNKNOWN INDICATION
     Dosage: UNK
     Route: 065
  20. HYDROXYUREA. [Suspect]
     Active Substance: HYDROXYUREA
     Indication: PRODUCT USED FOR UNKNOWN INDICATION
     Dosage: 400 MG, QOD
     Route: 065
  21. HYDROXYUREA. [Suspect]
     Active Substance: HYDROXYUREA
     Dosage: 600 MG, QOD
     Route: 065
  22. HYDROXYUREA. [Suspect]
     Active Substance: HYDROXYUREA
     Dosage: UNK
     Route: 065
     Dates: end: 20190827
  23. GABAPENTIN. [Suspect]
     Active Substance: GABAPENTIN
     Indication: PRODUCT USED FOR UNKNOWN INDICATION
     Dosage: UNK
     Route: 065
     Dates: end: 201907
  24. RANITIDINE. [Concomitant]
     Active Substance: RANITIDINE
     Indication: PRODUCT USED FOR UNKNOWN INDICATION
     Dosage: UNK, PRN
     Route: 065
  25. ASPIRIN. [Concomitant]
     Active Substance: ASPIRIN
     Indication: PRODUCT USED FOR UNKNOWN INDICATION
     Route: 065
  26. TURMERIC [CURCUMA LONGA] [Concomitant]
     Active Substance: HERBALS\TURMERIC
     Indication: PRODUCT USED FOR UNKNOWN INDICATION
     Route: 065

REACTIONS (58)
  - Disability [Unknown]
  - Heart rate abnormal [Recovered/Resolved]
  - Paraesthesia [Unknown]
  - Platelet count abnormal [Not Recovered/Not Resolved]
  - Withdrawal syndrome [Recovered/Resolved]
  - Hypermetabolism [Not Recovered/Not Resolved]
  - Bone pain [Not Recovered/Not Resolved]
  - Pruritus [Unknown]
  - Blood pressure increased [Unknown]
  - Anaemia [Unknown]
  - Fatigue [Not Recovered/Not Resolved]
  - Sleep apnoea syndrome [Unknown]
  - White blood cell count increased [Not Recovered/Not Resolved]
  - Hypersomnia [Not Recovered/Not Resolved]
  - Feeling abnormal [Not Recovered/Not Resolved]
  - Oxygen saturation abnormal [Not Recovered/Not Resolved]
  - Nausea [Recovered/Resolved]
  - Sinus congestion [Recovered/Resolved]
  - Hypoaesthesia [Recovered/Resolved]
  - Tooth disorder [Not Recovered/Not Resolved]
  - Product dose omission issue [Unknown]
  - Angina pectoris [Recovered/Resolved]
  - Atrioventricular block first degree [Unknown]
  - Depression [Not Recovered/Not Resolved]
  - Blood count abnormal [Unknown]
  - Weight decreased [Recovering/Resolving]
  - Early satiety [Not Recovered/Not Resolved]
  - Teeth brittle [Not Recovered/Not Resolved]
  - Infection [Not Recovered/Not Resolved]
  - Tooth loss [Unknown]
  - Somnolence [Not Recovered/Not Resolved]
  - Myeloproliferative neoplasm [Not Recovered/Not Resolved]
  - Memory impairment [Not Recovered/Not Resolved]
  - Ageusia [Not Recovered/Not Resolved]
  - Red blood cell count decreased [Not Recovered/Not Resolved]
  - Insomnia [Not Recovered/Not Resolved]
  - Decreased appetite [Not Recovered/Not Resolved]
  - Restless legs syndrome [Not Recovered/Not Resolved]
  - Feeling cold [Not Recovered/Not Resolved]
  - Anxiety [Recovered/Resolved]
  - Cough [Recovered/Resolved]
  - Therapeutic response unexpected [Unknown]
  - Poor quality sleep [Not Recovered/Not Resolved]
  - Drug interaction [Unknown]
  - Hypotension [Not Recovered/Not Resolved]
  - Hypertriglyceridaemia [Unknown]
  - Hypercholesterolaemia [Unknown]
  - Vomiting [Recovered/Resolved]
  - Anosmia [Not Recovered/Not Resolved]
  - Sputum increased [Recovered/Resolved]
  - Bradycardia [Not Recovered/Not Resolved]
  - Asthenia [Not Recovered/Not Resolved]
  - Productive cough [Recovered/Resolved]
  - Panic attack [Recovered/Resolved]
  - Lipids increased [Unknown]
  - Sinus bradycardia [Unknown]
  - Arthropod bite [Unknown]
  - Decreased activity [Not Recovered/Not Resolved]

NARRATIVE: CASE EVENT DATE: 201705
